FAERS Safety Report 5793229-1 (Version None)
Quarter: 2008Q2

REPORT INFORMATION
  Report Type: 
  Country: None (occurrence: None)
  Receive Date: 20080627
  Receipt Date: 20080619
  Transmission Date: 20081010
  Serious: Yes (Death, Hospitalization)
  Sender: FDA-Public Use
  Company Number: JP-AMGEN-US228451

PATIENT
  Sex: Female
  Weight: 43 kg

DRUGS (10)
  1. ENBREL [Suspect]
     Indication: RHEUMATOID ARTHRITIS
     Route: 058
     Dates: start: 20070428, end: 20070524
  2. PROGRAF [Suspect]
     Indication: RHEUMATOID ARTHRITIS
     Route: 048
     Dates: start: 20070123, end: 20070528
  3. PROGRAF [Suspect]
     Dosage: UNSPECIFIED
     Dates: end: 20070705
  4. PREDONINE [Concomitant]
     Indication: RHEUMATOID ARTHRITIS
     Route: 048
     Dates: start: 20070222, end: 20070506
  5. PREDONINE [Concomitant]
     Route: 048
     Dates: start: 20070507, end: 20070523
  6. GASMOTIN [Concomitant]
     Route: 048
  7. AMINOPHYLLINE [Concomitant]
     Route: 065
  8. LANSOPRAZOLE [Concomitant]
     Route: 048
  9. MOBIC [Concomitant]
     Indication: RHEUMATOID ARTHRITIS
     Route: 048
     Dates: start: 20070222
  10. FLUTIDE DISKUS [Concomitant]
     Route: 065

REACTIONS (5)
  - DISSEMINATED INTRAVASCULAR COAGULATION [None]
  - INTERSTITIAL LUNG DISEASE [None]
  - LUNG INFECTION PSEUDOMONAL [None]
  - OESOPHAGEAL CANDIDIASIS [None]
  - SEPTIC SHOCK [None]
